FAERS Safety Report 4995300-0 (Version None)
Quarter: 2006Q2

REPORT INFORMATION
  Report Type: 
  Country: None (occurrence: None)
  Receive Date: 20060508
  Receipt Date: 20060217
  Transmission Date: 20061013
  Serious: Yes (Hospitalization, Disabling)
  Sender: FDA-Public Use
  Company Number: US-MERCK-0602USA04800

PATIENT
  Age: 56 Year
  Sex: Male
  Weight: 91 kg

DRUGS (6)
  1. VIOXX [Suspect]
     Indication: OSTEOARTHRITIS
     Route: 048
     Dates: start: 20031003, end: 20040906
  2. VIOXX [Suspect]
     Indication: BACK PAIN
     Route: 048
     Dates: start: 20001130, end: 20001207
  3. VIOXX [Suspect]
     Route: 048
     Dates: start: 20020529, end: 20030118
  4. VIOXX [Suspect]
     Route: 048
     Dates: start: 20031003, end: 20040906
  5. VIOXX [Suspect]
     Route: 048
     Dates: start: 20001130, end: 20001207
  6. VIOXX [Suspect]
     Route: 048
     Dates: start: 20020529, end: 20030118

REACTIONS (8)
  - ANXIETY [None]
  - CARDIOVASCULAR DISORDER [None]
  - CONDITION AGGRAVATED [None]
  - DEPRESSION [None]
  - DYSPNOEA [None]
  - INJURY [None]
  - MYOCARDIAL INFARCTION [None]
  - PAIN [None]
